FAERS Safety Report 8572082-7 (Version None)
Quarter: 2012Q3

REPORT INFORMATION
  Report Type: 
  Country: None (occurrence: None)
  Receive Date: 20120806
  Receipt Date: 20120801
  Transmission Date: 20120928
  Serious: Yes (Other)
  Sender: FDA-Public Use
  Company Number: PHHY2012BR067469

PATIENT
  Age: 84 Year
  Sex: Female

DRUGS (3)
  1. DIOVAN [Suspect]
     Dosage: 2 TABLETS, BID
  2. DIOVAN [Suspect]
     Dosage: 2 TABLETS, DAILY
  3. DIOVAN [Suspect]
     Indication: HYPERTENSION
     Dosage: 1 TABLET, DAILY

REACTIONS (3)
  - BLOOD PRESSURE INADEQUATELY CONTROLLED [None]
  - HEART RATE DECREASED [None]
  - BLOOD PRESSURE INCREASED [None]
